FAERS Safety Report 4325672-1 (Version None)
Quarter: 2004Q1

REPORT INFORMATION
  Report Type: 
  Country: None (occurrence: None)
  Receive Date: 20040324
  Receipt Date: 20040309
  Transmission Date: 20041129
  Serious: Yes (Death, Hospitalization)
  Sender: FDA-Public Use
  Company Number: S04-USA-01370-01

PATIENT
  Age: 80 Year
  Sex: Female

DRUGS (8)
  1. NAMENDA [Suspect]
     Indication: DEMENTIA ALZHEIMER'S TYPE
     Dosage: 5 MG QD PO
     Route: 048
     Dates: start: 20040201, end: 20040201
  2. NAMENDA [Suspect]
     Indication: DEMENTIA ALZHEIMER'S TYPE
     Dates: start: 20040201, end: 20040227
  3. COUMADIN [Concomitant]
  4. SYNTHROID [Concomitant]
  5. ZOLOFT [Concomitant]
  6. FLOVENT [Concomitant]
  7. SEREVENT [Concomitant]
  8. FOSAMAX [Concomitant]

REACTIONS (15)
  - ANKLE FRACTURE [None]
  - ATAXIA [None]
  - ATRIAL FIBRILLATION [None]
  - CARDIAC ARREST [None]
  - COMA [None]
  - CONTUSION [None]
  - DEPRESSED LEVEL OF CONSCIOUSNESS [None]
  - FALL [None]
  - GENERAL PHYSICAL HEALTH DETERIORATION [None]
  - HEAD INJURY [None]
  - HIP FRACTURE [None]
  - HYPONATRAEMIA [None]
  - INTERNATIONAL NORMALISED RATIO INCREASED [None]
  - LOSS OF CONSCIOUSNESS [None]
  - WHITE BLOOD CELL COUNT INCREASED [None]
